FAERS Safety Report 21315942 (Version 2)
Quarter: 2022Q3

REPORT INFORMATION
  Report Type: Spontaneous
  Country: US (occurrence: US)
  Receive Date: 20220910
  Receipt Date: 20220929
  Transmission Date: 20221026
  Serious: No
  Sender: FDA-Public Use
  Company Number: US-drreddys-LIT/USA/22/0154199

PATIENT
  Age: 12 Year
  Sex: Male
  Weight: 33 kg

DRUGS (17)
  1. PREGABALIN [Suspect]
     Active Substance: PREGABALIN
     Indication: Analgesic therapy
     Dosage: ADMINISTERED ON KETAMINE DAY 4
  2. DULOXETINE [Suspect]
     Active Substance: DULOXETINE
     Indication: Analgesic therapy
  3. KETAMINE [Suspect]
     Active Substance: KETAMINE
     Indication: Analgesic therapy
     Dosage: BOLUS DOSE OF 20MG (0.6 MG/KG) FOLLOWED BY INFUSION MAINTAINED AT 0.25 MICROG/KG/MIN
  4. KETAMINE [Suspect]
     Active Substance: KETAMINE
     Dosage: INFUSION MAINTAINED AT 0.25 MICROG/KG/MIN
  5. KETAMINE [Suspect]
     Active Substance: KETAMINE
     Dosage: INITIATED AT 5 MG/H
  6. KETAMINE [Suspect]
     Active Substance: KETAMINE
     Dosage: INCREASED TO 0.24 MG/KG/H
  7. KETAMINE [Suspect]
     Active Substance: KETAMINE
     Dosage: TAPERED DOWN BY 0.1 MG/KG/H ON POSTOPERATIVE DAY 5 AND FURTHER DISCONTINUED ON POSTOPERATIVE DAY 7
  8. FENTANYL CITRATE [Concomitant]
     Active Substance: FENTANYL CITRATE
     Indication: Procedural pain
     Dosage: FOR INDUCTION
     Route: 042
  9. FENTANYL CITRATE [Concomitant]
     Active Substance: FENTANYL CITRATE
     Dosage: PRIOR TO INCISION
     Route: 042
  10. GABAPENTIN [Concomitant]
     Active Substance: GABAPENTIN
     Indication: Pain
  11. GABAPENTIN [Concomitant]
     Active Substance: GABAPENTIN
     Dosage: DOSE WAS DOUBLED
  12. KETOROLAC [Concomitant]
     Active Substance: KETOROLAC TROMETHAMINE
     Indication: Pain
  13. ACETAMINOPHEN [Concomitant]
     Active Substance: ACETAMINOPHEN
     Indication: Pain
  14. ACETAMINOPHEN [Concomitant]
     Active Substance: ACETAMINOPHEN
     Indication: Procedural pain
  15. CLONIDINE [Concomitant]
     Active Substance: CLONIDINE
     Indication: Analgesic therapy
     Dosage: ON THE NIGHT OF KD2
     Route: 048
  16. HYDROMORPHONE [Concomitant]
     Active Substance: HYDROMORPHONE
     Indication: Pain
  17. HYDROMORPHONE [Concomitant]
     Active Substance: HYDROMORPHONE
     Indication: Allodynia
     Dosage: DOSE WAS DOUBLED, NURSE-CONTROLLED ANALGESIA (HNCA) WITHOUT A BASAL RATE, 0.1 MG DEMAND DOSE WITH 15
     Route: 042

REACTIONS (2)
  - Vomiting [Recovered/Resolved]
  - Muscle spasms [Unknown]
